FAERS Safety Report 21433955 (Version 1)
Quarter: 2022Q4

REPORT INFORMATION
  Report Type: Spontaneous
  Country: US (occurrence: US)
  Receive Date: 20221010
  Receipt Date: 20221010
  Transmission Date: 20230113
  Serious: No
  Sender: FDA-Public Use
  Company Number: US-GSKCCFUS-Case-01515873_AE-86097

PATIENT
  Sex: Female

DRUGS (2)
  1. ZEJULA [Suspect]
     Active Substance: NIRAPARIB
     Indication: Product used for unknown indication
     Dosage: 200 MG
     Dates: start: 20220826
  2. ZEJULA [Suspect]
     Active Substance: NIRAPARIB
     Dosage: 100 MG
     Dates: start: 20220907

REACTIONS (5)
  - Dysphonia [Unknown]
  - Cough [Unknown]
  - Fatigue [Recovering/Resolving]
  - Nausea [Unknown]
  - Headache [Unknown]
